FAERS Safety Report 5362137-2 (Version None)
Quarter: 2007Q2

REPORT INFORMATION
  Report Type: 
  Country: None (occurrence: None)
  Receive Date: 20070612
  Receipt Date: 20070529
  Transmission Date: 20071010
  Serious: Yes (Life-Threatening, Hospitalization)
  Sender: FDA-Public Use
  Company Number: 2007-00705

PATIENT
  Age: 56 Year
  Sex: Male

DRUGS (8)
  1. VELCADE [Suspect]
     Indication: MULTIPLE MYELOMA
     Dosage: 2.60 MG
     Dates: start: 20061127
  2. DOXORUBICIN HCL [Suspect]
     Indication: MULTIPLE MYELOMA
     Dosage: 18.00 MG
     Dates: start: 20061127
  3. DEXAMETHASONE TAB [Suspect]
     Indication: MULTIPLE MYELOMA
     Dosage: 40.00 MG
  4. ACYCLOVIR [Concomitant]
  5. SEPTRA [Concomitant]
  6. CLODRONATE DISODIUM           (CLODRONATE DISODIUM) [Concomitant]
  7. LANSOPRAZOLE [Concomitant]
  8. METOCLOPRAMIDE (METOCLOPRAMIDE) [Concomitant]

REACTIONS (9)
  - ABDOMINAL DISTENSION [None]
  - CLOSTRIDIUM DIFFICILE TOXIN TEST POSITIVE [None]
  - DEHYDRATION [None]
  - ELECTROLYTE IMBALANCE [None]
  - HEART RATE INCREASED [None]
  - HYPOTENSION [None]
  - PSEUDOMEMBRANOUS COLITIS [None]
  - PYREXIA [None]
  - VOMITING [None]
